FAERS Safety Report 16798359 (Version 2)
Quarter: 2019Q4

REPORT INFORMATION
  Report Type: Report from Study
  Country: None (occurrence: US)
  Receive Date: 20190912
  Receipt Date: 20191009
  Transmission Date: 20200122
  Serious: Yes (Other)
  Sender: FDA-Public Use
  Company Number: US-ABBVIE-19K-163-2917377-00

PATIENT
  Age: 68 Year
  Sex: Female
  Weight: 49.49 kg

DRUGS (5)
  1. OMEPRAZOLE. [Concomitant]
     Active Substance: OMEPRAZOLE
     Indication: GASTRITIS
  2. KETOROLAC [Concomitant]
     Active Substance: KETOROLAC TROMETHAMINE
     Indication: ARTHRITIS
  3. SYNTHROID [Suspect]
     Active Substance: LEVOTHYROXINE SODIUM
     Indication: HYPOTHYROIDISM
     Route: 048
     Dates: start: 1989
  4. LAMICTAL [Concomitant]
     Active Substance: LAMOTRIGINE
     Indication: SEIZURE
  5. CELEBREX [Concomitant]
     Active Substance: CELECOXIB
     Indication: ARTHRITIS

REACTIONS (33)
  - Hernia [Recovered/Resolved]
  - Skin cancer [Unknown]
  - Foot deformity [Unknown]
  - Amnesia [Unknown]
  - Hernia [Recovered/Resolved]
  - Neoplasm malignant [Unknown]
  - Seizure [Unknown]
  - Spider vein [Unknown]
  - Plantar fasciitis [Unknown]
  - Gingival operation [Unknown]
  - Breast cancer female [Unknown]
  - Seizure [Recovered/Resolved]
  - Cataract [Recovered/Resolved]
  - Cardiac operation [Unknown]
  - Lung neoplasm malignant [Not Recovered/Not Resolved]
  - Back pain [Unknown]
  - Balance disorder [Recovered/Resolved]
  - Tinnitus [Unknown]
  - Osteoporosis [Unknown]
  - Medical device removal [Unknown]
  - Medical procedure [Unknown]
  - Dizziness [Recovered/Resolved]
  - Cataract [Recovered/Resolved]
  - Carotid artery occlusion [Recovered/Resolved]
  - Skin cancer [Unknown]
  - Radiation skin injury [Unknown]
  - Dry mouth [Unknown]
  - Benign neoplasm of thyroid gland [Not Recovered/Not Resolved]
  - Lymphadenectomy [Unknown]
  - Breast conserving surgery [Unknown]
  - Dental implantation [Unknown]
  - Peripheral coldness [Unknown]
  - Respiratory disorder [Unknown]

NARRATIVE: CASE EVENT DATE: 1990
